FAERS Safety Report 8492768-2 (Version None)
Quarter: 2012Q2

REPORT INFORMATION
  Report Type: 
  Country: None (occurrence: None)
  Receive Date: 20120629
  Receipt Date: 20120629
  Transmission Date: 20120825
  Serious: No
  Sender: FDA-Public Use
  Company Number: None

PATIENT
  Sex: Female

DRUGS (2)
  1. CHLORAPREP [Suspect]
     Indication: THERAPEUTIC SKIN CARE TOPICAL
     Dosage: 1.5ML, ONCE, TOPICAL
     Route: 061
     Dates: start: 20120510
  2. CHLORAPREP [Suspect]
     Indication: PREOPERATIVE CARE
     Dosage: 1.5ML, ONCE, TOPICAL
     Route: 061
     Dates: start: 20120510

REACTIONS (2)
  - SCRATCH [None]
  - APPLICATION SITE BLEEDING [None]
